FAERS Safety Report 5404310-0 (Version None)
Quarter: 2007Q3

REPORT INFORMATION
  Report Type: 
  Country: None (occurrence: None)
  Receive Date: 20070802
  Receipt Date: 20070725
  Transmission Date: 20080115
  Serious: Yes (Other)
  Sender: FDA-Public Use
  Company Number: HQWYE269818MAY07

PATIENT
  Sex: Female

DRUGS (6)
  1. EFFEXOR XR [Suspect]
     Indication: DEPRESSION
     Route: 064
     Dates: start: 20060101, end: 20070301
  2. EFFEXOR XR [Suspect]
     Route: 064
     Dates: start: 20070301, end: 20070301
  3. EFFEXOR XR [Suspect]
     Route: 064
     Dates: start: 20070301, end: 20070501
  4. WELLBUTRIN XL [Suspect]
     Indication: DEPRESSION
     Route: 064
  5. ALDOMET [Concomitant]
     Indication: PREGNANCY INDUCED HYPERTENSION
     Route: 064
     Dates: start: 20070405
  6. VITAMINS NOS [Concomitant]
     Indication: PRENATAL CARE
     Dosage: UNKNOWN
     Route: 064

REACTIONS (3)
  - CONVULSION NEONATAL [None]
  - DRUG WITHDRAWAL SYNDROME NEONATAL [None]
  - DYSKINESIA [None]
